FAERS Safety Report 11788332 (Version 1)
Quarter: 2015Q4

REPORT INFORMATION
  Report Type: Report from Study
  Country: US (occurrence: US)
  Receive Date: 20151201
  Receipt Date: 20151201
  Transmission Date: 20160305
  Serious: Yes (Other)
  Sender: FDA-Public Use
  Company Number: US-AMGEN-USASL2015126910

PATIENT
  Sex: Female

DRUGS (2)
  1. ENBREL [Suspect]
     Active Substance: ETANERCEPT
     Indication: PSORIASIS
     Dosage: UNK UNK, UNK
     Route: 065
     Dates: start: 200810, end: 2008
  2. ENBREL [Suspect]
     Active Substance: ETANERCEPT
     Dosage: UNK, 3 TIMES/WK
     Route: 065

REACTIONS (2)
  - Diabetes mellitus [Unknown]
  - Hypoacusis [Unknown]
